FAERS Safety Report 6656506-8 (Version None)
Quarter: 2010Q1

REPORT INFORMATION
  Report Type: 
  Country: None (occurrence: None)
  Receive Date: 20100324
  Receipt Date: 20100222
  Transmission Date: 20100710
  Serious: Yes (Hospitalization)
  Sender: FDA-Public Use
  Company Number: APP200900238

PATIENT
  Age: 51 Year
  Sex: Female
  Weight: 117 kg

DRUGS (12)
  1. LIDOCAINE HYDROCHLORIDE INJECTION, USP (LIDOCAINE HYDROCHLORIDE) [Suspect]
     Indication: BACK PAIN
     Dosage: EPIDURAL
     Route: 008
     Dates: start: 20081204
  2. DEPO-MEDROL [Suspect]
     Indication: BACK PAIN
     Dosage: EPIDURAL
     Route: 008
     Dates: start: 20081204
  3. SODIUM CHLORIDE [Concomitant]
     Indication: BACK PAIN
     Dosage: EPIDURAL
     Route: 008
     Dates: start: 20081204
  4. BUDESONIDE [Suspect]
     Indication: ASTHMA
     Dosage: 180 MCG, TWO PUFFS TWICE DAILY
  5. POTASSIUM (POTASSIUM) [Concomitant]
  6. IMITREX [Concomitant]
  7. ACIPHEX [Concomitant]
  8. LASIX [Concomitant]
  9. ABILIFY [Concomitant]
  10. LOTENSIN (CAPTOPRIL) [Concomitant]
  11. LUNESTA [Concomitant]
  12. DITROPAN XL [Concomitant]

REACTIONS (1)
  - PYREXIA [None]
